FAERS Safety Report 8375765-7 (Version None)
Quarter: 2012Q2

REPORT INFORMATION
  Report Type: 
  Country: None (occurrence: None)
  Receive Date: 20120518
  Receipt Date: 20120518
  Transmission Date: 20120825
  Serious: No
  Sender: FDA-Public Use
  Company Number: None

PATIENT
  Sex: Male

DRUGS (2)
  1. WELLBUTRIN XL [Suspect]
     Indication: DEPRESSION
     Dates: start: 20111101, end: 20120301
  2. WELLBUTRIN [Suspect]

REACTIONS (5)
  - TINNITUS [None]
  - ARTHRALGIA [None]
  - IRRITABILITY [None]
  - ANXIETY [None]
  - PRODUCT SUBSTITUTION ISSUE [None]
